FAERS Safety Report 21987545 (Version 2)
Quarter: 2023Q1

REPORT INFORMATION
  Report Type: Report from Study
  Country: FR (occurrence: FR)
  Receive Date: 20230214
  Receipt Date: 20230223
  Transmission Date: 20230418
  Serious: No
  Sender: FDA-Public Use
  Company Number: FR-GBT-019999

PATIENT
  Age: 34 Year
  Sex: Female
  Weight: 86 kg

DRUGS (4)
  1. VOXELOTOR [Suspect]
     Active Substance: VOXELOTOR
     Indication: Haemolytic anaemia
     Route: 048
     Dates: start: 20220915
  2. FOLIC ACID [Concomitant]
     Active Substance: FOLIC ACID
     Indication: Anaemia
  3. SIKLOS [Concomitant]
     Active Substance: HYDROXYUREA
     Indication: Sickle cell disease
     Dates: start: 20170101
  4. CHOLECALCIFEROL [Concomitant]
     Active Substance: CHOLECALCIFEROL
     Dates: start: 20170101

REACTIONS (2)
  - Diarrhoea [Unknown]
  - Abdominal pain [Recovering/Resolving]

NARRATIVE: CASE EVENT DATE: 20230101
